FAERS Safety Report 6870924-4 (Version None)
Quarter: 2010Q3

REPORT INFORMATION
  Report Type: 
  Country: None (occurrence: None)
  Receive Date: 20100723
  Receipt Date: 20100712
  Transmission Date: 20110219
  Serious: Yes (Other)
  Sender: FDA-Public Use
  Company Number: PHMT2007CA02246

PATIENT
  Sex: Male

DRUGS (2)
  1. CLOZARIL [Suspect]
     Indication: SCHIZOPHRENIA
     Dosage: 500 MG, QHS
     Route: 048
     Dates: start: 20070315
  2. CLOZARIL [Suspect]
     Dosage: UNK
     Dates: start: 20080821

REACTIONS (2)
  - GRANULOCYTE COUNT DECREASED [None]
  - HEPATITIS C [None]
